FAERS Safety Report 13587557 (Version 1)
Quarter: 2017Q2

REPORT INFORMATION
  Report Type: Spontaneous
  Country: US (occurrence: US)
  Receive Date: 20170526
  Receipt Date: 20170526
  Transmission Date: 20170830
  Serious: No
  Sender: FDA-Public Use
  Company Number: None

PATIENT
  Sex: Female

DRUGS (1)
  1. HUMIRA [Suspect]
     Active Substance: ADALIMUMAB
     Indication: CROHN^S DISEASE
     Dosage: HUMIRA PEN 40MG/.8ML EVERY OTHER WEEK SUBCUTANEOUSLY
     Route: 058
     Dates: start: 20161011

REACTIONS (1)
  - Nephrolithiasis [None]
